FAERS Safety Report 15416410 (Version 2)
Quarter: 2018Q4

REPORT INFORMATION
  Report Type: Spontaneous
  Country: BE (occurrence: BE)
  Receive Date: 20180924
  Receipt Date: 20181128
  Transmission Date: 20190204
  Serious: Yes (Death, Life-Threatening, Other)
  Sender: FDA-Public Use
  Company Number: BE-BRISTOL-MYERS SQUIBB COMPANY-BMS-2018-087327

PATIENT
  Age: 67 Year
  Sex: Male

DRUGS (1)
  1. YERVOY [Suspect]
     Active Substance: IPILIMUMAB
     Indication: MALIGNANT MELANOMA
     Dosage: UNAVAILABLE
     Route: 065
     Dates: start: 201801

REACTIONS (4)
  - Acute kidney injury [Fatal]
  - Clostridium difficile colitis [Fatal]
  - Colitis [Unknown]
  - Rash [Unknown]
